FAERS Safety Report 10760641 (Version 1)
Quarter: 2015Q1

REPORT INFORMATION
  Report Type: Spontaneous
  Country: KR (occurrence: None)
  Receive Date: 20150202
  Receipt Date: 20150202
  Transmission Date: 20150721
  Serious: Yes (Hospitalization)
  Sender: FDA-Public Use
  Company Number: 1000052117

PATIENT
  Age: 63 Year
  Sex: Male
  Weight: 56 kg

DRUGS (7)
  1. SPIRIVA (TIOTROPIUM BROMIDE) [Concomitant]
  2. SERETIDE (FLUTICASONE PROPIONATE, SALMETEROL) [Concomitant]
  3. SYMBICORT [Concomitant]
     Active Substance: BUDESONIDE\FORMOTEROL FUMARATE DIHYDRATE
  4. ANYDIPINE (AMLODIPINE MALEATE) [Concomitant]
  5. ROFLUMILAST (ROFLUMILAST) (TABLETS) [Suspect]
     Active Substance: ROFLUMILAST
     Indication: CHRONIC OBSTRUCTIVE PULMONARY DISEASE
     Dosage: 1 DF (1 DOSAGE FORMS, 1 IN 1 D), ORAL
     Route: 048
     Dates: start: 20130628
  6. CODENAL (CODEINE, PHENOBARBITAL) [Concomitant]
  7. ERDOS (ERDOSTEINE) [Concomitant]

REACTIONS (2)
  - Pulmonary mass [None]
  - Chronic obstructive pulmonary disease [None]

NARRATIVE: CASE EVENT DATE: 20130913
